FAERS Safety Report 9060104 (Version 1)
Quarter: 2013Q1

REPORT INFORMATION
  Report Type: Spontaneous
  Country: US (occurrence: None)
  Receive Date: 20130207
  Receipt Date: 20130207
  Transmission Date: 20140127
  Serious: No
  Sender: FDA-Public Use
  Company Number: None

PATIENT
  Sex: Female

DRUGS (1)
  1. LUPRON DEPOT 30 MG [Suspect]
     Route: 030
     Dates: start: 201311

REACTIONS (4)
  - VIIth nerve paralysis [None]
  - Lip swelling [None]
  - Arthropod bite [None]
  - Inappropriate schedule of drug administration [None]
